FAERS Safety Report 6131913-0 (Version None)
Quarter: 2009Q1

REPORT INFORMATION
  Report Type: 
  Country: None (occurrence: None)
  Receive Date: 20090325
  Receipt Date: 20090312
  Transmission Date: 20090719
  Serious: Yes (Death)
  Sender: FDA-Public Use
  Company Number: US-PFIZER INC-2009166830

PATIENT
  Age: 5 Year
  Sex: Male

DRUGS (3)
  1. LYRICA [Suspect]
  2. OXYCODONE [Suspect]
     Dosage: UNK
  3. DEXTROMETHORPHAN [Suspect]
     Dosage: UNK

REACTIONS (1)
  - OVERDOSE [None]
